FAERS Safety Report 11618002 (Version 2)
Quarter: 2017Q4

REPORT INFORMATION
  Report Type: Spontaneous
  Country: ES (occurrence: ES)
  Receive Date: 20151010
  Receipt Date: 20171128
  Transmission Date: 20180320
  Serious: Yes (Other)
  Sender: FDA-Public Use
  Company Number: ES-ACCORD-034291

PATIENT
  Age: 56 Year
  Sex: Female

DRUGS (4)
  1. TRAMADOL/TRAMADOL HYDROCHLORIDE [Suspect]
     Active Substance: TRAMADOL HYDROCHLORIDE
     Indication: PAIN
  2. GABAPENTIN. [Suspect]
     Active Substance: GABAPENTIN
     Indication: NEURALGIA
     Dosage: REDUCTION OF HALF THE DOSE OF 1100 MG DAILY.
  3. AMITRIPTYLINE [Suspect]
     Active Substance: AMITRIPTYLINE
     Indication: NEURALGIA
  4. DULOXETINE. [Suspect]
     Active Substance: DULOXETINE
     Indication: DEPRESSION

REACTIONS (5)
  - Hypertension [None]
  - Rash generalised [None]
  - Hallucination, visual [None]
  - Psychotic disorder due to a general medical condition [Recovered/Resolved]
  - Rash pruritic [Recovered/Resolved]
